FAERS Safety Report 18188676 (Version 1)
Quarter: 2020Q3

REPORT INFORMATION
  Report Type: Spontaneous
  Country: FR (occurrence: FR)
  Receive Date: 20200824
  Receipt Date: 20200824
  Transmission Date: 20201103
  Serious: Yes (Hospitalization, Other)
  Sender: FDA-Public Use
  Company Number: FR-JNJFOC-20170410970

PATIENT
  Age: 83 Year
  Sex: Male
  Weight: 53 kg

DRUGS (12)
  1. ANGIOX [Interacting]
     Active Substance: BIVALIRUDIN
     Indication: ACUTE CORONARY SYNDROME
     Dosage: 250 MG (STRENGTH) ONE DAY
     Route: 040
     Dates: start: 20170324, end: 20170324
  2. ROGART [Concomitant]
     Indication: PRODUCT USED FOR UNKNOWN INDICATION
  3. ANGIOX [Interacting]
     Active Substance: BIVALIRUDIN
     Route: 041
     Dates: start: 20170324
  4. SERTRALINE [Interacting]
     Active Substance: SERTRALINE HYDROCHLORIDE
     Indication: DEPRESSION
     Dosage: ADDITIONAL INFO: ADDITIONAL INFO: SERTRALINE BASE
     Route: 048
     Dates: start: 20170323
  5. KARDEGIC [Suspect]
     Active Substance: ASPIRIN DL-LYSINE
     Indication: PRODUCT USED FOR UNKNOWN INDICATION
     Dates: start: 20170331
  6. KRENOSIN [Concomitant]
     Active Substance: ADENOSINE
     Indication: ANGIOCARDIOGRAM
     Dosage: 6 MG/2 ML
     Route: 013
     Dates: start: 20170324, end: 20170324
  7. ISOPTINE [Concomitant]
     Active Substance: VERAPAMIL HYDROCHLORIDE
     Indication: ANGIOCARDIOGRAM
     Dosage: 5 MG/2 ML
     Route: 013
     Dates: start: 20170324, end: 20170324
  8. ISOSORBIDE DINITRATE. [Concomitant]
     Active Substance: ISOSORBIDE DINITRATE
     Route: 065
     Dates: start: 20170326, end: 20170327
  9. ABCIXIMAB [Suspect]
     Active Substance: ABCIXIMAB
     Indication: ANGIOCARDIOGRAM
     Dosage: 1 DOSE
     Route: 042
     Dates: start: 20170324, end: 20170324
  10. NORADRENALIN [Concomitant]
     Active Substance: NOREPINEPHRINE\NOREPINEPHRINE BITARTRATE
     Indication: ANGIOCARDIOGRAM
     Dosage: 30 DROPS
     Route: 042
     Dates: start: 20170324, end: 20170324
  11. ISOSORBIDE DINITRATE. [Concomitant]
     Active Substance: ISOSORBIDE DINITRATE
     Dosage: ADDITIONAL INFO: RISORDAN
     Route: 065
  12. NORADRAN [Concomitant]
     Indication: PRODUCT USED FOR UNKNOWN INDICATION

REACTIONS (6)
  - Drug interaction [Unknown]
  - Gingival bleeding [Unknown]
  - Thrombocytopenia [Recovered/Resolved]
  - Mallory-Weiss syndrome [Unknown]
  - Oesophageal ulcer haemorrhage [Recovered/Resolved]
  - Anaemia [Recovered/Resolved]

NARRATIVE: CASE EVENT DATE: 20170324
